FAERS Safety Report 7304677-2 (Version None)
Quarter: 2011Q1

REPORT INFORMATION
  Report Type: 
  Country: None (occurrence: None)
  Receive Date: 20110222
  Receipt Date: 20110207
  Transmission Date: 20110831
  Serious: Yes (Hospitalization)
  Sender: FDA-Public Use
  Company Number: AU-CELGENEUS-008-20785-11020763

PATIENT
  Sex: Male

DRUGS (3)
  1. MELPHALAN [Concomitant]
     Route: 065
  2. PREDNISONE [Concomitant]
     Route: 065
  3. THALOMID [Suspect]
     Indication: MULTIPLE MYELOMA
     Route: 048
     Dates: start: 20100902

REACTIONS (2)
  - MULTIPLE MYELOMA [None]
  - PATHOLOGICAL FRACTURE [None]
